FAERS Safety Report 13676760 (Version 1)
Quarter: 2017Q2

REPORT INFORMATION
  Report Type: Spontaneous
  Country: FR (occurrence: FR)
  Receive Date: 20170622
  Receipt Date: 20170622
  Transmission Date: 20170830
  Serious: Yes (Hospitalization)
  Sender: FDA-Public Use
  Company Number: FR-UCBSA-2017024000

PATIENT
  Age: 0 Year
  Sex: Female
  Weight: 2.9 kg

DRUGS (6)
  1. URBANYL [Concomitant]
     Active Substance: CLOBAZAM
     Indication: PRODUCT USED FOR UNKNOWN INDICATION
     Dosage: UNK
  2. KALEORID [Concomitant]
     Active Substance: POTASSIUM CHLORIDE
     Indication: PRODUCT USED FOR UNKNOWN INDICATION
     Dosage: UNK
  3. ZEBINIX [Suspect]
     Active Substance: ESLICARBAZEPINE ACETATE
     Indication: PRODUCT USED FOR UNKNOWN INDICATION
     Dosage: 800 MG, ONCE DAILY (QD) 1 DF (1 DF, 1 IN 1 DAY)
     Route: 064
     Dates: start: 20150319, end: 20151114
  4. KEPPRA [Suspect]
     Active Substance: LEVETIRACETAM
     Indication: PRODUCT USED FOR UNKNOWN INDICATION
     Dosage: 3000 MG, ONCE DAILY (QD), 3DF (3DF, 1 IN 1 DAY)
     Route: 064
     Dates: start: 20150315, end: 20151114
  5. KEPPRA [Suspect]
     Active Substance: LEVETIRACETAM
     Dosage: 3000 MG, ONCE DAILY (QD), 3DF (3DF, 1 IN 1 DAY)
     Route: 063
     Dates: start: 201511
  6. ZEBINIX [Suspect]
     Active Substance: ESLICARBAZEPINE ACETATE
     Dosage: 800 MG, ONCE DAILY (QD) 1 DF (1 DF, 1 IN 1 DAY)
     Route: 063
     Dates: start: 201511

REACTIONS (4)
  - Foetal exposure during pregnancy [Unknown]
  - Poor weight gain neonatal [Unknown]
  - Hypotonia neonatal [Unknown]
  - Exposure during breast feeding [Unknown]

NARRATIVE: CASE EVENT DATE: 20150315
